FAERS Safety Report 5628132-0 (Version None)
Quarter: 2008Q1

REPORT INFORMATION
  Report Type: 
  Country: None (occurrence: None)
  Receive Date: 20080215
  Receipt Date: 20080206
  Transmission Date: 20080703
  Serious: Yes (Life-Threatening, Hospitalization, Other)
  Sender: FDA-Public Use
  Company Number: GB-ELI_LILLY_AND_COMPANY-GB200802001441

PATIENT
  Age: 56 Year
  Sex: Male

DRUGS (11)
  1. XIGRIS [Suspect]
     Indication: SEPSIS
     Dosage: 8.3 ML, 96 HOUR INFUSION WITH 1 HOUR INTERVALS
     Route: 042
     Dates: start: 20080127
  2. ASPIRIN [Concomitant]
     Dosage: 75 MG, UNKNOWN
     Route: 054
     Dates: start: 20080127
  3. CLARITHROMYCIN [Concomitant]
     Dosage: 1 G, UNKNOWN
     Route: 042
     Dates: start: 20080126, end: 20080128
  4. ERYTHROMYCIN [Concomitant]
     Dosage: 200 MG, UNKNOWN
     Route: 042
     Dates: start: 20080128
  5. GENTAMICIN [Concomitant]
     Dosage: 320 MG, UNKNOWN
     Route: 042
     Dates: start: 20080126, end: 20080126
  6. HYDROCORTISONE [Concomitant]
     Dosage: UNK, UNKNOWN
     Route: 042
     Dates: start: 20080126
  7. LINEZOLID [Concomitant]
     Dosage: 1.2 G, UNKNOWN
     Route: 042
     Dates: start: 20080126, end: 20080128
  8. LINEZOLID [Concomitant]
     Dosage: 2.4 G, UNKNOWN
     Route: 042
  9. METOCLOPRAMIDE [Concomitant]
     Dosage: UNK, UNKNOWN
     Route: 042
     Dates: start: 20080128
  10. OMEPRAZOLE [Concomitant]
     Dosage: 20 MG, UNKNOWN
     Route: 042
  11. PABRINEX [Concomitant]
     Dosage: UNK, UNKNOWN
     Route: 042
     Dates: start: 20080126

REACTIONS (2)
  - ELECTROCARDIOGRAM ST SEGMENT ELEVATION [None]
  - MYOPERICARDITIS [None]
